FAERS Safety Report 22116187 (Version 2)
Quarter: 2023Q2

REPORT INFORMATION
  Report Type: Report from Study
  Country: NL (occurrence: NL)
  Receive Date: 20230320
  Receipt Date: 20230411
  Transmission Date: 20230722
  Serious: Yes (Other)
  Sender: FDA-Public Use
  Company Number: NL-ABBVIE-4255973

PATIENT

DRUGS (4)
  1. CERTOLIZUMAB PEGOL [Suspect]
     Active Substance: CERTOLIZUMAB PEGOL
     Indication: Ankylosing spondylitis
     Dosage: UNK
  2. HUMIRA [Suspect]
     Active Substance: ADALIMUMAB
     Indication: Ankylosing spondylitis
     Dosage: UNK
     Route: 058
     Dates: start: 2017, end: 2020
  3. ENBREL [Suspect]
     Active Substance: ETANERCEPT
     Indication: Ankylosing spondylitis
     Dosage: UNK
  4. COSENTYX [Suspect]
     Active Substance: SECUKINUMAB
     Indication: Ankylosing spondylitis

REACTIONS (9)
  - Colitis ulcerative [Unknown]
  - Fracture [Unknown]
  - Cardiac disorder [Unknown]
  - Bradykinesia [Unknown]
  - Liver disorder [Unknown]
  - General physical health deterioration [Unknown]
  - Rash [Unknown]
  - Off label use [Unknown]
  - Therapeutic product effect incomplete [Unknown]
